FAERS Safety Report 7581554-3 (Version None)
Quarter: 2011Q2

REPORT INFORMATION
  Report Type: 
  Country: None (occurrence: None)
  Receive Date: 20110629
  Receipt Date: 20110622
  Transmission Date: 20111010
  Serious: Yes (Hospitalization, Other)
  Sender: FDA-Public Use
  Company Number: PHHO2010IT15757

PATIENT
  Sex: Female
  Weight: 48 kg

DRUGS (5)
  1. FTY [Suspect]
     Dosage: 0.5 MG, DAILY
     Route: 048
     Dates: end: 20100929
  2. OXYBUTYNIN [Concomitant]
  3. FEDRA [Concomitant]
  4. MEPRAL [Concomitant]
  5. FTY [Suspect]
     Indication: MULTIPLE SCLEROSIS
     Dosage: DOUBLE BLIND
     Route: 048
     Dates: start: 20080730

REACTIONS (8)
  - CONDITION AGGRAVATED [None]
  - MULTIPLE SCLEROSIS RELAPSE [None]
  - DIARRHOEA [None]
  - ASTHENIA [None]
  - CYSTITIS [None]
  - PARAESTHESIA [None]
  - ESCHERICHIA INFECTION [None]
  - PYREXIA [None]
